FAERS Safety Report 5806916-3 (Version None)
Quarter: 2008Q3

REPORT INFORMATION
  Report Type: 
  Country: None (occurrence: None)
  Receive Date: 20080711
  Receipt Date: 20080702
  Transmission Date: 20090109
  Serious: Yes (Life-Threatening, Hospitalization)
  Sender: FDA-Public Use
  Company Number: GB-BAUSCH-2008BL002915

PATIENT
  Age: 43 Year
  Sex: Female

DRUGS (3)
  1. PREDNISOLONE [Suspect]
     Indication: UVEITIS
  2. MYCOPHENOLATE MOFETIL [Suspect]
     Indication: UVEITIS
     Dates: end: 20060101
  3. TACROLIMUS [Suspect]
     Indication: UVEITIS
     Dates: end: 20060101

REACTIONS (10)
  - CARDIOGENIC SHOCK [None]
  - HYPERTENSION [None]
  - LOWER RESPIRATORY TRACT INFECTION [None]
  - MITRAL VALVE INCOMPETENCE [None]
  - MYCOBACTERIUM CHELONEI INFECTION [None]
  - OSTEOPOROTIC FRACTURE [None]
  - PNEUMONIA [None]
  - SPINAL COMPRESSION FRACTURE [None]
  - URINARY TRACT INFECTION [None]
  - VENTRICULAR DYSFUNCTION [None]
